FAERS Safety Report 6996175-0 (Version None)
Quarter: 2010Q3

REPORT INFORMATION
  Report Type: 
  Country: None (occurrence: None)
  Receive Date: 20100918
  Receipt Date: 20090105
  Transmission Date: 20110219
  Serious: No
  Sender: FDA-Public Use
  Company Number: US-WYE-H07537509

PATIENT
  Sex: Female
  Weight: 68.1 kg

DRUGS (3)
  1. EFFEXOR XR [Suspect]
     Indication: ANXIETY DISORDER
     Route: 048
     Dates: start: 20060101
  2. NICODERM [Suspect]
     Dosage: UNKNOWN
     Route: 061
  3. PRILOSEC [Concomitant]

REACTIONS (7)
  - ABNORMAL DREAMS [None]
  - AGGRESSION [None]
  - ANXIETY [None]
  - CONDITION AGGRAVATED [None]
  - DRUG INTERACTION [None]
  - IRRITABILITY [None]
  - MIDDLE INSOMNIA [None]
